FAERS Safety Report 7915557-3 (Version None)
Quarter: 2011Q4

REPORT INFORMATION
  Report Type: 
  Country: None (occurrence: None)
  Receive Date: 20111115
  Receipt Date: 20110816
  Transmission Date: 20120403
  Serious: Yes (Hospitalization)
  Sender: FDA-Public Use
  Company Number: US-BRISTOL-MYERS SQUIBB COMPANY-15975022

PATIENT
  Age: 32 Year
  Sex: Female

DRUGS (1)
  1. YERVOY [Suspect]
     Dosage: NO. OF DOSES: 2. 2ND DOSE AFTER 3 WEEKS AFTER 1ST DOSE.
     Dates: start: 20110708

REACTIONS (2)
  - HEPATITIS [None]
  - DIARRHOEA [None]
